FAERS Safety Report 6670357-X (Version None)
Quarter: 2010Q2

REPORT INFORMATION
  Report Type: 
  Country: None (occurrence: None)
  Receive Date: 20100405
  Receipt Date: 20100319
  Transmission Date: 20101027
  Serious: Yes (Hospitalization)
  Sender: FDA-Public Use
  Company Number: 2010000955

PATIENT
  Age: 52 Year
  Sex: Male

DRUGS (12)
  1. ERLOTNIB           (ERLOTINIB) [Suspect]
     Indication: GLIOBLASTOMA
     Dosage: 150 MG, ORAL
     Route: 048
     Dates: start: 20091105, end: 20100117
  2. BEVACIZUMAB [Suspect]
     Indication: GLIOBLASTOMA
     Dosage: 10 MG/KG, Q2W, INTRAVENOUS
     Route: 042
     Dates: start: 20090309, end: 20100302
  3. TEMZOLOMIDE [Suspect]
     Indication: GLIOBLASTOMA
     Dosage: 200 MG/M2, ORAL
     Route: 048
     Dates: start: 20100105, end: 20100303
  4. COLACE (DOCUSATE SODIUM) [Concomitant]
  5. KEPPRA [Concomitant]
  6. SENNA (SENNA) [Concomitant]
  7. MIRALAX [Concomitant]
  8. BENADRYL [Concomitant]
  9. HYDROCORTONE [Concomitant]
  10. HYDROXYZINE [Concomitant]
  11. CLINDAMYCIN HCL [Concomitant]
  12. BACTRIM [Concomitant]

REACTIONS (8)
  - CONVULSION [None]
  - HEADACHE [None]
  - HYPERSENSITIVITY [None]
  - MENTAL STATUS CHANGES [None]
  - MIDDLE INSOMNIA [None]
  - NAUSEA [None]
  - PYREXIA [None]
  - RETCHING [None]
